FAERS Safety Report 5146816-8 (Version None)
Quarter: 2006Q4

REPORT INFORMATION
  Report Type: 
  Country: None (occurrence: None)
  Receive Date: 20061107
  Receipt Date: 20061107
  Transmission Date: 20070319
  Serious: Yes (Other)
  Sender: FDA-Public Use
  Company Number: None

PATIENT
  Sex: Female
  Weight: 81.6475 kg

DRUGS (1)
  1. LITHOBID [Suspect]
     Dosage: 300MG TID
     Dates: start: 20000101

REACTIONS (8)
  - ANGER [None]
  - ASTHENIA [None]
  - DEPRESSION [None]
  - DIARRHOEA [None]
  - DIZZINESS POSTURAL [None]
  - GENERALISED OEDEMA [None]
  - LETHARGY [None]
  - MUSCULAR WEAKNESS [None]
